FAERS Safety Report 10464934 (Version 3)
Quarter: 2014Q4

REPORT INFORMATION
  Report Type: Spontaneous
  Country: US (occurrence: US)
  Receive Date: 20140919
  Receipt Date: 20141028
  Transmission Date: 20150528
  Serious: Yes (Death, Life-Threatening, Hospitalization, Disabling, Other)
  Sender: FDA-Public Use
  Company Number: US-GLAXOSMITHKLINE-A0879651A

PATIENT
  Age: 79 Year
  Sex: Male
  Weight: 81.8 kg

DRUGS (11)
  1. PERCOCET [Concomitant]
     Active Substance: ACETAMINOPHEN\OXYCODONE HYDROCHLORIDE
  2. VELCADE [Suspect]
     Active Substance: BORTEZOMIB
     Indication: PLASMA CELL MYELOMA
     Route: 042
     Dates: start: 20100301, end: 20100412
  3. ASA [Concomitant]
     Active Substance: ASPIRIN
     Route: 048
  4. DILTIAZEM [Concomitant]
     Active Substance: DILTIAZEM
  5. KADIAN [Concomitant]
     Active Substance: MORPHINE SULFATE
  6. KCL [Concomitant]
     Active Substance: POTASSIUM CHLORIDE
     Route: 048
  7. MELPHALAN [Suspect]
     Active Substance: MELPHALAN
     Indication: PLASMA CELL MYELOMA
     Route: 048
     Dates: start: 20100412, end: 20100415
  8. PREDNISONE. [Suspect]
     Active Substance: PREDNISONE
     Indication: PLASMA CELL MYELOMA
     Route: 048
     Dates: start: 20100301, end: 20100415
  9. LASIX [Concomitant]
     Active Substance: FUROSEMIDE
  10. LEXAPRO [Concomitant]
     Active Substance: ESCITALOPRAM OXALATE
     Route: 048
  11. OMEPRAZOLE. [Concomitant]
     Active Substance: OMEPRAZOLE
     Route: 048

REACTIONS (8)
  - Blood creatinine increased [Fatal]
  - Asthenia [Unknown]
  - Sepsis [Fatal]
  - Dehydration [Unknown]
  - Hypotension [Unknown]
  - Acute kidney injury [Fatal]
  - Clostridium test positive [Unknown]
  - Death [Fatal]

NARRATIVE: CASE EVENT DATE: 20100416
